FAERS Safety Report 5040442-7 (Version None)
Quarter: 2006Q2

REPORT INFORMATION
  Report Type: 
  Country: None (occurrence: None)
  Receive Date: 20060626
  Receipt Date: 20060626
  Transmission Date: 20061013
  Serious: Yes (Hospitalization)
  Sender: FDA-Public Use
  Company Number: None

PATIENT
  Age: 63 Year
  Sex: Male
  Weight: 90 kg

DRUGS (16)
  1. FLUDARABINE [Suspect]
     Indication: CHRONIC LYMPHOCYTIC LEUKAEMIA
     Dosage: 20 MG/M2
     Dates: start: 20060207, end: 20060509
  2. CYTOXAN [Suspect]
     Indication: CHRONIC LYMPHOCYTIC LEUKAEMIA
     Dosage: 150 MG/M2
     Dates: start: 20060207, end: 20060509
  3. RITUXAN [Suspect]
     Indication: CHRONIC LYMPHOCYTIC LEUKAEMIA
     Dosage: 500 MG/M2
     Dates: start: 20060207, end: 20060509
  4. RITUXAN [Suspect]
  5. RITUXAN [Suspect]
  6. ALLOPURINOL [Concomitant]
  7. BENADRYL [Concomitant]
  8. TYLENOL (CAPLET) [Concomitant]
  9. KYTRIL [Concomitant]
  10. ARANESP [Concomitant]
  11. NEULASTA [Concomitant]
  12. BACTRIM [Concomitant]
  13. ACYCLOVIR [Concomitant]
  14. MULTI-VITAMIN [Concomitant]
  15. PENTAMIDINE ISETHIONATE [Concomitant]
  16. COMPAZINE [Concomitant]

REACTIONS (3)
  - ABDOMINAL DISTENSION [None]
  - NAUSEA [None]
  - SMALL INTESTINAL OBSTRUCTION [None]
